FAERS Safety Report 8512311-9 (Version None)
Quarter: 2012Q3

REPORT INFORMATION
  Report Type: 
  Country: None (occurrence: None)
  Receive Date: 20120716
  Receipt Date: 20120705
  Transmission Date: 20120928
  Serious: No
  Sender: FDA-Public Use
  Company Number: NL-ACTELION-A-CH2011-56617

PATIENT
  Sex: Female
  Weight: 57 kg

DRUGS (4)
  1. ALDACTONE [Concomitant]
  2. FUROSEMIDE [Concomitant]
  3. TRACLEER [Suspect]
     Indication: PULMONARY ARTERIAL HYPERTENSION
     Dosage: 125 MG, BID
     Route: 048
     Dates: start: 20090101, end: 20111026
  4. ASPIRIN [Concomitant]

REACTIONS (3)
  - PREGNANCY [None]
  - NORMAL NEWBORN [None]
  - DELIVERY [None]
